FAERS Safety Report 22066014 (Version 1)
Quarter: 2023Q1

REPORT INFORMATION
  Report Type: Spontaneous
  Country: US (occurrence: None)
  Receive Date: 20230303
  Receipt Date: 20230303
  Transmission Date: 20230418
  Serious: Yes (Hospitalization)
  Sender: FDA-Public Use
  Company Number: None

PATIENT
  Sex: Male

DRUGS (1)
  1. SYNAGIS [Suspect]
     Active Substance: PALIVIZUMAB
     Indication: Pregnancy
     Dosage: FREQUENCY : MONTHLY;?
     Route: 030
     Dates: start: 20221220

REACTIONS (6)
  - Crying [None]
  - Dyspnoea [None]
  - Adenovirus test positive [None]
  - Human rhinovirus test positive [None]
  - Condition aggravated [None]
  - Bronchitis [None]
